FAERS Safety Report 7770654-0 (Version None)
Quarter: 2011Q3

REPORT INFORMATION
  Report Type: 
  Country: None (occurrence: None)
  Receive Date: 20110922
  Receipt Date: 20110919
  Transmission Date: 20111222
  Serious: Yes (Hospitalization, Other)
  Sender: FDA-Public Use
  Company Number: PHEH2011US04667

PATIENT
  Sex: Male
  Weight: 111 kg

DRUGS (9)
  1. FUROSEMIDE [Concomitant]
     Dosage: 1 DF DAILY
     Route: 048
  2. LISINOPRIL [Concomitant]
     Dosage: 1 DF, UNK
     Route: 048
  3. SANDOSTATIN LAR [Suspect]
     Indication: PANCREATIC NEUROENDOCRINE TUMOUR
     Dosage: 20 MG, PER MONTH
     Route: 030
     Dates: start: 20100201
  4. NOVOLOG [Concomitant]
     Dosage: 60 U, UNK
  5. SANDOSTATIN LAR [Suspect]
     Dosage: 30 MG, EVERY MONTH
     Route: 030
  6. ACTOS [Concomitant]
     Dosage: UNK UKN, UNK
     Route: 048
  7. ASPIRIN [Concomitant]
     Dosage: 1 DF, UNK
  8. ALLOPURINOL [Concomitant]
     Dosage: 1 DF, UNK
     Route: 048
  9. ATENOLOL [Concomitant]
     Dosage: 1 DF, UNK
     Route: 048

REACTIONS (7)
  - HYPERBILIRUBINAEMIA [None]
  - DIARRHOEA [None]
  - ASTHENIA [None]
  - BONE LESION [None]
  - WEIGHT DECREASED [None]
  - ABDOMINAL PAIN [None]
  - BILIARY DILATATION [None]
